FAERS Safety Report 4941571-6 (Version None)
Quarter: 2006Q1

REPORT INFORMATION
  Report Type: 
  Country: None (occurrence: None)
  Receive Date: 20060308
  Receipt Date: 20060224
  Transmission Date: 20060701
  Serious: Yes (Hospitalization)
  Sender: FDA-Public Use
  Company Number: 2005JP002334

PATIENT
  Age: 31 Year
  Sex: Male
  Weight: 58 kg

DRUGS (9)
  1. PROGRAF [Suspect]
     Indication: RENAL TRANSPLANT
     Dosage: SEE IMAGE
     Route: 048
     Dates: start: 20000522
  2. CELLCEPT [Suspect]
     Indication: KIDNEY TRANSPLANT REJECTION
     Dosage: 1 G, BID, ORAL
     Route: 048
     Dates: start: 20000531
  3. PREDNISOLONE [Suspect]
     Indication: KIDNEY TRANSPLANT REJECTION
     Dosage: 20 MG, UID/QD, ORAL
     Route: 048
     Dates: start: 20000522
  4. AHLBULIN (ANTILYMPHOCYTE IMMUNOGLOBULIN (HORSE)) INJECTION [Suspect]
     Indication: KIDNEY TRANSPLANT REJECTION
     Dosage: 1500 MG, UID/QD, IV NOS
     Route: 042
     Dates: start: 20000524, end: 20000606
  5. SPANIDIN (GUSPERIMUS HYDROCHLORIDE) INJECTION [Suspect]
     Indication: KIDNEY TRANSPLANT REJECTION
     Dosage: 300 MG, UID/QD, IV NOS
     Route: 042
     Dates: start: 20000524, end: 20000530
  6. ZANTAC [Concomitant]
  7. HERBESSOR R (DILTIAZEM HYDROCHLORIDE) TABLET [Concomitant]
  8. AMLODIN (AMLODIPINE BESILATE) TABLET [Concomitant]
  9. FERROMIA (FERROUS CITRATE) TABLET [Concomitant]

REACTIONS (2)
  - EPIDIDYMITIS [None]
  - ORCHITIS [None]
